APPROVED DRUG PRODUCT: SIMVASTATIN
Active Ingredient: SIMVASTATIN
Strength: 5MG
Dosage Form/Route: TABLET;ORAL
Application: A090868 | Product #001
Applicant: PHARMOBEDIENT CONSULTING LLC
Approved: Jun 8, 2010 | RLD: No | RS: No | Type: DISCN